FAERS Safety Report 11244492 (Version 3)
Quarter: 2015Q3

REPORT INFORMATION
  Report Type: Spontaneous
  Country: US (occurrence: US)
  Receive Date: 20150707
  Receipt Date: 20150817
  Transmission Date: 20151125
  Serious: Yes (Other)
  Sender: FDA-Public Use
  Company Number: US-GLAXOSMITHKLINE-US2015094172

PATIENT
  Age: 72 Year
  Sex: Female

DRUGS (13)
  1. LOSARTAN. [Concomitant]
     Active Substance: LOSARTAN
  2. ANASTROZOLE. [Concomitant]
     Active Substance: ANASTROZOLE
  3. DILTIAZEM [Concomitant]
     Active Substance: DILTIAZEM
  4. PANTOPRAZOLE [Concomitant]
     Active Substance: PANTOPRAZOLE SODIUM
  5. VITAMIN C [Concomitant]
     Active Substance: ASCORBIC ACID
  6. DOXAZOSINE [Concomitant]
     Active Substance: DOXAZOSIN MESYLATE
  7. FISH OIL CONCENTRATE [Concomitant]
  8. ANORO ELLIPTA [Suspect]
     Active Substance: UMECLIDINIUM BROMIDE\VILANTEROL TRIFENATATE
     Indication: LYMPHANGIOLEIOMYOMATOSIS
     Dosage: 1 PUFF(S), 1D
     Dates: start: 20150506
  9. VENLAFAXINE [Concomitant]
     Active Substance: VENLAFAXINE HYDROCHLORIDE
  10. ALLEGRA [Concomitant]
     Active Substance: FEXOFENADINE HYDROCHLORIDE
  11. CALCIUM [Concomitant]
     Active Substance: CALCIUM
  12. ACIDOPHILUS PROBIOTIC CAPSULES [Concomitant]
  13. TRIAMTERENE. [Concomitant]
     Active Substance: TRIAMTERENE

REACTIONS (6)
  - Muscle fatigue [Not Recovered/Not Resolved]
  - Gait disturbance [Not Recovered/Not Resolved]
  - Balance disorder [Not Recovered/Not Resolved]
  - Therapeutic response unexpected [Not Recovered/Not Resolved]
  - Seizure [Unknown]
  - Brain neoplasm [Unknown]

NARRATIVE: CASE EVENT DATE: 201506
